FAERS Safety Report 7105131-3 (Version None)
Quarter: 2010Q4

REPORT INFORMATION
  Report Type: 
  Country: None (occurrence: None)
  Receive Date: 20101109
  Receipt Date: 20101028
  Transmission Date: 20110411
  Serious: Yes (Hospitalization)
  Sender: FDA-Public Use
  Company Number: 2010-3743

PATIENT
  Sex: Male

DRUGS (1)
  1. APO-GO AMPOULES (APOMORPHINE HYDROCHLORIDE) (APOMORPHINE HYDROCHLORIDE [Suspect]
     Indication: PRODUCT USED FOR UNKNOWN INDICATION

REACTIONS (1)
  - HOSPITALISATION [None]
